FAERS Safety Report 23744318 (Version 1)
Quarter: 2024Q2

REPORT INFORMATION
  Report Type: Spontaneous
  Country: CA (occurrence: CA)
  Receive Date: 20240415
  Receipt Date: 20240415
  Transmission Date: 20240716
  Serious: Yes (Other)
  Sender: FDA-Public Use
  Company Number: CA-TEVA-VS-3181625

PATIENT
  Age: 62 Year
  Sex: Female

DRUGS (2)
  1. PROGESTERONE [Suspect]
     Active Substance: PROGESTERONE
     Indication: Product used for unknown indication
     Route: 065
  2. ESTROGEL [Suspect]
     Active Substance: ESTRADIOL
     Indication: Product used for unknown indication
     Dosage: ESTROGEL METERED DOSE PUMP
     Route: 065

REACTIONS (1)
  - Postmenopausal haemorrhage [Unknown]
